FAERS Safety Report 4566970-6 (Version None)
Quarter: 2005Q1

REPORT INFORMATION
  Report Type: 
  Country: None (occurrence: None)
  Receive Date: 20050201
  Receipt Date: 20040113
  Transmission Date: 20050727
  Serious: Yes (Other)
  Sender: FDA-Public Use
  Company Number: US-BRISTOL-MYERS SQUIBB COMPANY-12478053

PATIENT
  Sex: Female

DRUGS (33)
  1. STADOL [Suspect]
     Route: 045
  2. CEFACLOR [Concomitant]
  3. CLARITIN [Concomitant]
  4. PROMETHAZINE [Concomitant]
  5. PEPCID [Concomitant]
  6. ULTRAM [Concomitant]
  7. METHYLPREDNISOLONE [Concomitant]
  8. NAPRELAN [Concomitant]
  9. PRILOSEC [Concomitant]
  10. METHOCARBAMOL [Concomitant]
  11. MONISTAT 7 [Concomitant]
  12. HISTALET FORTE [Concomitant]
  13. AMITRIPTYLINE [Concomitant]
  14. ATENOLOL [Concomitant]
  15. MEPERIDINE W/PROMETHAZINE [Concomitant]
  16. ESTRACE [Concomitant]
  17. ZOLOFT [Concomitant]
  18. KEFTAB [Concomitant]
  19. ZITHROMAX [Concomitant]
  20. CARISOPRODOL [Concomitant]
  21. MAXIFED [Concomitant]
  22. CECLOR CD [Concomitant]
  23. DIFLUCAN [Concomitant]
  24. TUSSI-ORGANIDIN [Concomitant]
  25. SKELAXIN [Concomitant]
  26. TALACEN [Concomitant]
  27. MEPERGAN [Concomitant]
  28. REDUX [Concomitant]
  29. BUSPAR [Concomitant]
  30. DURACT [Concomitant]
  31. NITROSTAT [Concomitant]
  32. ZYRTEC [Concomitant]
  33. METROGEL [Concomitant]

REACTIONS (1)
  - DEPENDENCE [None]
